FAERS Safety Report 6034810-4 (Version None)
Quarter: 2009Q1

REPORT INFORMATION
  Report Type: 
  Country: None (occurrence: None)
  Receive Date: 20090112
  Receipt Date: 20090106
  Transmission Date: 20090719
  Serious: Yes (Other)
  Sender: FDA-Public Use
  Company Number: US-JNJFOC-20090101192

PATIENT
  Sex: Female
  Weight: 57.61 kg

DRUGS (4)
  1. TOPAMAX [Suspect]
     Indication: MIGRAINE PROPHYLAXIS
     Route: 048
  2. VYTORIN [Concomitant]
     Indication: BLOOD CHOLESTEROL INCREASED
     Route: 048
  3. PROVENTIL [Concomitant]
     Indication: BRONCHITIS
     Route: 055
  4. XANAX [Concomitant]
     Indication: ANXIETY
     Route: 048

REACTIONS (3)
  - ARTHRALGIA [None]
  - OSTEOPOROSIS [None]
  - SPINAL COMPRESSION FRACTURE [None]
